FAERS Safety Report 8451112-7 (Version None)
Quarter: 2012Q2

REPORT INFORMATION
  Report Type: 
  Country: None (occurrence: None)
  Receive Date: 20120620
  Receipt Date: 20120611
  Transmission Date: 20120825
  Serious: Yes (Other)
  Sender: FDA-Public Use
  Company Number: US-JNJFOC-20120308480

PATIENT
  Sex: Female
  Weight: 123.83 kg

DRUGS (7)
  1. ALPRAZOLAM [Concomitant]
  2. CELEXA [Concomitant]
  3. DEXILANT [Concomitant]
  4. USTEKINUMAB [Suspect]
     Indication: PSORIASIS
     Route: 058
     Dates: start: 20100401
  5. VYTORIN [Concomitant]
  6. VANOS [Concomitant]
  7. ARTHROTEC [Concomitant]

REACTIONS (4)
  - VISUAL IMPAIRMENT [None]
  - SARCOIDOSIS [None]
  - CHEST PAIN [None]
  - SINUS DISORDER [None]
